FAERS Safety Report 16969574 (Version 2)
Quarter: 2020Q1

REPORT INFORMATION
  Report Type: Spontaneous
  Country: US (occurrence: US)
  Receive Date: 20191029
  Receipt Date: 20200106
  Transmission Date: 20200409
  Serious: Yes (Other)
  Sender: FDA-Public Use
  Company Number: US-BAYER-2019-193903

PATIENT
  Age: 28 Year
  Sex: Female
  Weight: 132.43 kg

DRUGS (2)
  1. MIRENA [Suspect]
     Active Substance: LEVONORGESTREL
     Indication: CONTRACEPTION
  2. MIRENA [Suspect]
     Active Substance: LEVONORGESTREL
     Indication: CONTRACEPTION
     Dosage: 20 MCG/24HR, CONT
     Route: 015
     Dates: start: 20190827, end: 20191015

REACTIONS (3)
  - Device expulsion [Recovered/Resolved]
  - Abdominal pain lower [None]
  - Uterine haemorrhage [None]

NARRATIVE: CASE EVENT DATE: 20191015
